FAERS Safety Report 18092515 (Version 3)
Quarter: 2020Q3

REPORT INFORMATION
  Report Type: Spontaneous
  Country: JP (occurrence: JP)
  Receive Date: 20200730
  Receipt Date: 20200804
  Transmission Date: 20201103
  Serious: Yes (Hospitalization, Other)
  Sender: FDA-Public Use
  Company Number: JP-PFIZER INC-2020287521

PATIENT
  Age: 75 Year
  Sex: Female

DRUGS (5)
  1. CAPECITABINE. [Concomitant]
     Active Substance: CAPECITABINE
     Indication: COLON CANCER
     Dosage: 1000 MG/M2, 2X/DAY, (DAY 1 TO DAY 14), (3 COURSES)
  2. OXALIPLATIN. [Concomitant]
     Active Substance: OXALIPLATIN
     Dosage: UNK, CYCLIC, (6 COURSES), (AN APPROXIMATE 4?MONTH PERIOD)
  3. OXALIPLATIN. [Concomitant]
     Active Substance: OXALIPLATIN
     Indication: COLON CANCER
     Dosage: 130 MG/M2, CYCLIC, (DAY 1, 3 COURSES)
  4. BEVACIZUMAB. [Suspect]
     Active Substance: BEVACIZUMAB
     Indication: COLON CANCER
     Dosage: 7.5 MG/KG, EVERY 3 WEEKS, (DAY 1 AND EVERY 3 WEEKS), 3 COURSES
  5. CAPECITABINE. [Concomitant]
     Active Substance: CAPECITABINE
     Dosage: UNK, CYCLIC, 6 COURSES, (AN APPROXIMATE 4?MONTH PERIOD)

REACTIONS (1)
  - Pneumatosis intestinalis [Recovered/Resolved]
